FAERS Safety Report 8736749 (Version 3)
Quarter: 2013Q2

REPORT INFORMATION
  Report Type: Spontaneous
  Country: MA (occurrence: None)
  Receive Date: 20120805
  Receipt Date: 20130521
  Transmission Date: 20140414
  Serious: Yes (Death, Hospitalization)
  Sender: FDA-Public Use
  Company Number: KAD201207-000401

PATIENT
  Age: 71 Year
  Sex: Male

DRUGS (5)
  1. AMPHOTERICIN B [Suspect]
     Indication: DISSEMINATED CRYPTOCOCCOSIS
  2. FLUCYTOSINE [Suspect]
     Indication: DISSEMINATED CRYPTOCOCCOSIS
  3. AZATHIOPRINE SODIUM [Suspect]
     Indication: PEMPHIGUS
  4. PREDNISONE [Suspect]
     Indication: PEMPHIGUS
  5. INSULIN(INSULIN) [Concomitant]

REACTIONS (4)
  - Loss of consciousness [None]
  - Disseminated cryptococcosis [None]
  - General physical health deterioration [None]
  - Disease recurrence [None]
